FAERS Safety Report 4918154-7 (Version None)
Quarter: 2006Q1

REPORT INFORMATION
  Report Type: 
  Country: None (occurrence: None)
  Receive Date: 20060215
  Receipt Date: 20060131
  Transmission Date: 20060701
  Serious: Yes (Other)
  Sender: FDA-Public Use
  Company Number: DEU-2006-0001962

PATIENT
  Sex: Male

DRUGS (3)
  1. OXYCODONE HCL [Suspect]
     Dosage: ORAL
     Route: 048
     Dates: start: 20060127
  2. OXYCODONE HCL [Suspect]
     Dosage: ORAL
     Route: 048
     Dates: end: 20060126
  3. IBUPROFEN [Concomitant]

REACTIONS (2)
  - BLINDNESS [None]
  - EYE PAIN [None]
